APPROVED DRUG PRODUCT: MYCELEX-7 COMBINATION PACK
Active Ingredient: CLOTRIMAZOLE
Strength: 1%,100MG
Dosage Form/Route: CREAM, TABLET;TOPICAL, VAGINAL
Application: N020389 | Product #002
Applicant: BAYER HEALTHCARE LLC
Approved: Jun 23, 1994 | RLD: No | RS: No | Type: DISCN